FAERS Safety Report 21280388 (Version 5)
Quarter: 2022Q4

REPORT INFORMATION
  Report Type: Spontaneous
  Country: CA (occurrence: CA)
  Receive Date: 20220901
  Receipt Date: 20221206
  Transmission Date: 20230112
  Serious: Yes (Hospitalization, Other)
  Sender: FDA-Public Use
  Company Number: CA-PFIZER INC-202201103258

PATIENT
  Age: 58 Year
  Sex: Male

DRUGS (19)
  1. RUXIENCE [Suspect]
     Active Substance: RITUXIMAB-PVVR
     Indication: Polymyositis
     Dosage: 1000 MG, DAY 1, DAY 15
     Route: 042
     Dates: start: 20210813, end: 20210826
  2. RUXIENCE [Suspect]
     Active Substance: RITUXIMAB-PVVR
     Indication: Necrotising myositis
     Dosage: 1000 MG, ON DAY 1 AND DAY 15
     Route: 042
     Dates: start: 20220214, end: 20220228
  3. RUXIENCE [Suspect]
     Active Substance: RITUXIMAB-PVVR
     Dosage: 1000 MG, ON DAY 1 AND DAY 15
     Route: 042
     Dates: start: 20220815, end: 20220815
  4. ALENDRONATE [Concomitant]
     Active Substance: ALENDRONATE SODIUM
     Dosage: 1 DF, WEEKLY, DOSAGE NOT AVAILABLE
     Route: 065
     Dates: start: 202010
  5. FLUTICASONE FUROATE [Concomitant]
     Active Substance: FLUTICASONE FUROATE
     Dosage: 1 DF, 27.5 UG, 1X/DAY (27.5 UG, 2 SPRAYS IN EACH NOSTRIL DAILY)
     Route: 045
  6. DESLO [Concomitant]
     Dosage: 5 MG, 1X/DAY
     Route: 065
  7. FOLIC ACID [Concomitant]
     Active Substance: FOLIC ACID
     Dosage: 5 MG, 3X1 WEEK
     Route: 065
  8. IMMUNE GLOBULIN NOS [Concomitant]
     Active Substance: IMMUNE GLOBULIN NOS
     Dosage: 1 DF, EVERY 3 WEEKS
     Route: 065
     Dates: start: 202011
  9. LOPROX [Concomitant]
     Active Substance: CICLOPIROX\CICLOPIROX OLAMINE
     Dosage: 1 %, FREQUENCY NOT AVAILABLE
     Route: 065
  10. METHOTREXATE [Concomitant]
     Active Substance: METHOTREXATE
     Dosage: 25 MG, WEEKLY
     Route: 058
     Dates: start: 202012
  11. MIRTAZAPINE [Concomitant]
     Active Substance: MIRTAZAPINE
     Dosage: 7500 UG, 1X/DAY
     Route: 065
  12. PANTOPRAZOLE SODIUM [Concomitant]
     Active Substance: PANTOPRAZOLE SODIUM
     Dosage: 40 MG, 1X/DAY
     Route: 065
  13. PREDNISONE [Concomitant]
     Active Substance: PREDNISONE
     Dosage: 1 DF, DECREASING DOSE: WAS AT 75MG
     Route: 065
  14. PREDNISONE [Concomitant]
     Active Substance: PREDNISONE
     Dosage: 1 DF, NOW AT 20MG AS OF JUN2021 (WITHDRAWAL PREDNISONE UNTIL 15 MG)
     Route: 065
     Dates: start: 202106
  15. PRO CAL SHOT [Concomitant]
     Dosage: 500 MG, FREQUENCY NOT AVAILABLE
     Route: 065
  16. SULFASALAZINE [Concomitant]
     Active Substance: SULFASALAZINE
     Dosage: 1 DF, 3X1 WEEK, DOSAGE NOT AVAILABLE
     Route: 065
     Dates: start: 202012
  17. SYMBICORT [Concomitant]
     Active Substance: BUDESONIDE\FORMOTEROL FUMARATE DIHYDRATE
     Dosage: 200 UG, 2 INHALATIONS DAILY
     Route: 065
  18. SYNTHROID [Concomitant]
     Active Substance: LEVOTHYROXINE SODIUM
     Dosage: 100 UG, 1X/DAY
     Route: 065
  19. CHOLECALCIFEROL [Concomitant]
     Active Substance: CHOLECALCIFEROL
     Dosage: 1 DF, DOSAGE NOT AVAILABLE
     Route: 065

REACTIONS (7)
  - Polymyalgia rheumatica [Unknown]
  - Jamestown Canyon virus infection [Not Recovered/Not Resolved]
  - Off label use [Unknown]
  - Impaired work ability [Unknown]
  - Muscular weakness [Unknown]
  - Gait disturbance [Unknown]
  - Impaired quality of life [Unknown]

NARRATIVE: CASE EVENT DATE: 20220101
